FAERS Safety Report 22227771 (Version 4)
Quarter: 2023Q2

REPORT INFORMATION
  Report Type: Spontaneous
  Country: US (occurrence: US)
  Receive Date: 20230419
  Receipt Date: 20230620
  Transmission Date: 20230721
  Serious: No
  Sender: FDA-Public Use
  Company Number: US-PFIZER INC-202300150117

PATIENT
  Age: 16 Year
  Sex: Female
  Weight: 58.97 kg

DRUGS (2)
  1. GENOTROPIN [Suspect]
     Active Substance: SOMATROPIN
     Indication: Turner^s syndrome
     Dosage: 2 MG
     Dates: start: 202304
  2. ESTRADIOL [Concomitant]
     Active Substance: ESTRADIOL
     Indication: Turner^s syndrome
     Dosage: UNK, 2X/WEEK (0.025MG PATCH, USES HALF A PATCH)

REACTIONS (3)
  - Drug dose omission by device [Unknown]
  - Device breakage [Unknown]
  - Device issue [Unknown]

NARRATIVE: CASE EVENT DATE: 20230101
